FAERS Safety Report 5068235-5 (Version None)
Quarter: 2006Q3

REPORT INFORMATION
  Report Type: 
  Country: None (occurrence: None)
  Receive Date: 20060802
  Receipt Date: 20050616
  Transmission Date: 20061208
  Serious: Yes (Hospitalization, Other)
  Sender: FDA-Public Use
  Company Number: US-BRISTOL-MYERS SQUIBB COMPANY-13005954

PATIENT
  Age: 70 Year
  Sex: Female
  Weight: 52 kg

DRUGS (7)
  1. COUMADIN [Suspect]
     Indication: CARDIAC OPERATION
     Dosage: STOPPED IN MAY-2004; THEN RESUMED (DATE NOT PROVIDED)
     Route: 048
     Dates: start: 20000101
  2. COUMADIN [Suspect]
     Indication: HEART VALVE REPLACEMENT
     Dosage: STOPPED IN MAY-2004; THEN RESUMED (DATE NOT PROVIDED)
     Route: 048
     Dates: start: 20000101
  3. NEURONTIN [Concomitant]
     Dosage: FOR SEVEREAL YEARS
  4. ULTRACET [Concomitant]
     Dosage: 1/2 TABLET DAILY FOR SEVERAL YEARS
  5. COREG [Concomitant]
  6. ASPIRIN [Concomitant]
  7. AMBIEN [Concomitant]
     Dosage: NIGHTLY FOR 5 YEARS

REACTIONS (3)
  - BLOOD URINE PRESENT [None]
  - EYE HAEMORRHAGE [None]
  - INTERNATIONAL NORMALISED RATIO INCREASED [None]
